FAERS Safety Report 7075777-X (Version None)
Quarter: 2010Q4

REPORT INFORMATION
  Report Type: 
  Country: None (occurrence: None)
  Receive Date: 20101101
  Receipt Date: 20101029
  Transmission Date: 20110411
  Serious: Yes (Other)
  Sender: FDA-Public Use
  Company Number: US-BIOGENIDEC-2010BI036641

PATIENT
  Sex: Female

DRUGS (1)
  1. AVONEX [Suspect]
     Indication: MULTIPLE SCLEROSIS
     Route: 030
     Dates: start: 20070822

REACTIONS (9)
  - ASTHENIA [None]
  - FEAR [None]
  - INFECTION [None]
  - MENINGITIS [None]
  - NUCLEAR MAGNETIC RESONANCE IMAGING ABNORMAL [None]
  - ORAL INFECTION [None]
  - OSTEOARTHRITIS [None]
  - PAIN [None]
  - SCOLIOSIS [None]
